FAERS Safety Report 6705977-7 (Version None)
Quarter: 2010Q2

REPORT INFORMATION
  Report Type: 
  Country: None (occurrence: None)
  Receive Date: 20100423
  Receipt Date: 20100111
  Transmission Date: 20101027
  Serious: No
  Sender: FDA-Public Use
  Company Number: ALL1-2010-00121

PATIENT
  Age: 54 Year
  Sex: Female

DRUGS (2)
  1. VYVANSE [Suspect]
     Indication: DRUG USE FOR UNKNOWN INDICATION
     Dosage: 50 MG, 1X/DAY:QD, ORAL, 30 MG, 1X/DAY:QD, ORAL
     Route: 048
     Dates: start: 20091201, end: 20091201
  2. VYVANSE [Suspect]
     Indication: DRUG USE FOR UNKNOWN INDICATION
     Dosage: 50 MG, 1X/DAY:QD, ORAL, 30 MG, 1X/DAY:QD, ORAL
     Route: 048
     Dates: start: 20091214, end: 20091201

REACTIONS (4)
  - BURNING SENSATION [None]
  - DISORIENTATION [None]
  - GINGIVAL PAIN [None]
  - LIP OEDEMA [None]
